FAERS Safety Report 19508296 (Version 2)
Quarter: 2021Q3

REPORT INFORMATION
  Report Type: Spontaneous
  Country: DE (occurrence: DE)
  Receive Date: 20210708
  Receipt Date: 20210713
  Transmission Date: 20211014
  Serious: Yes (Hospitalization, Other)
  Sender: FDA-Public Use
  Company Number: DE-ASTRAZENECA-2021A595167

PATIENT
  Age: 69 Year
  Sex: Male

DRUGS (11)
  1. PANTOZOL [Concomitant]
     Active Substance: PANTOPRAZOLE SODIUM
  2. ASPIRIN. [Concomitant]
     Active Substance: ASPIRIN
  3. EZETIMIB [Concomitant]
     Active Substance: EZETIMIBE
  4. TOREM [Concomitant]
     Active Substance: TORSEMIDE
  5. SPIRONOLACTON [Concomitant]
     Active Substance: SPIRONOLACTONE
  6. BISOPROLOL [Concomitant]
     Active Substance: BISOPROLOL
  7. PULMICORT TURBUHALER [Suspect]
     Active Substance: BUDESONIDE
     Indication: CHRONIC OBSTRUCTIVE PULMONARY DISEASE
     Route: 055
  8. LISINOPRIL. [Concomitant]
     Active Substance: LISINOPRIL
  9. BECIOMETHASON [Concomitant]
     Dosage: METERED AEROSOL
  10. SYMBICORT [Suspect]
     Active Substance: BUDESONIDE\FORMOTEROL FUMARATE DIHYDRATE
     Indication: CHRONIC OBSTRUCTIVE PULMONARY DISEASE
     Route: 055
  11. SPIOLTO [Concomitant]
     Active Substance: OLODATEROL HYDROCHLORIDE\TIOTROPIUM BROMIDE MONOHYDRATE
     Dosage: 2 STROKES, METERED AEROSOL

REACTIONS (9)
  - Respiratory failure [Unknown]
  - Lymphadenopathy [Unknown]
  - Coronary artery disease [Unknown]
  - Panic attack [Unknown]
  - Pericardial effusion [Unknown]
  - Mitral valve sclerosis [Unknown]
  - Pulmonary hypertension [Unknown]
  - Cardiac failure [Unknown]
  - Pleural effusion [Unknown]

NARRATIVE: CASE EVENT DATE: 2021
